FAERS Safety Report 8243225-X (Version None)
Quarter: 2012Q1

REPORT INFORMATION
  Report Type: 
  Country: None (occurrence: None)
  Receive Date: 20120329
  Receipt Date: 20120317
  Transmission Date: 20120608
  Serious: Yes (Hospitalization, Other)
  Sender: FDA-Public Use
  Company Number: US-MPIJNJ-2012-01950

PATIENT
  Age: 10 Year
  Sex: Female
  Weight: 20.9 kg

DRUGS (9)
  1. FENTANYL [Suspect]
     Indication: PAIN
     Route: 042
  2. MERCAPTOPURINE [Suspect]
     Indication: PRODUCT USED FOR UNKNOWN INDICATION
  3. HYDROCORTISONE [Suspect]
     Indication: ACUTE LYMPHOCYTIC LEUKAEMIA
     Dosage: UNK MG, CYCLIC
     Dates: start: 20120217, end: 20120217
  4. METHADONE HCL [Suspect]
     Indication: PAIN
  5. VELCADE [Suspect]
     Indication: ACUTE LYMPHOCYTIC LEUKAEMIA
     Dosage: 1.3 MG/M2, CYCLIC
     Route: 042
     Dates: start: 20120217, end: 20120224
  6. CYCLOPHOSPHAMIDE [Suspect]
     Indication: ACUTE LYMPHOCYTIC LEUKAEMIA
     Dosage: 440 MG/M2, CYCLIC
     Route: 042
     Dates: start: 20120217, end: 20120221
  7. ETOPOSIDE [Suspect]
     Indication: ACUTE LYMPHOCYTIC LEUKAEMIA
     Dosage: 100 MG/M2, CYCLIC
     Route: 042
     Dates: start: 20120217, end: 20120221
  8. METHOTREXATE [Suspect]
     Indication: ACUTE LYMPHOCYTIC LEUKAEMIA
     Dosage: UNK MG/M2, CYCLIC
     Route: 042
     Dates: start: 20120217, end: 20120217
  9. CYTARABINE [Suspect]
     Indication: ACUTE LYMPHOCYTIC LEUKAEMIA
     Dosage: UNK MG, CYCLIC
     Route: 037
     Dates: start: 20120217, end: 20120217

REACTIONS (5)
  - CEREBROVASCULAR ACCIDENT [None]
  - HYPOXIA [None]
  - ABDOMINAL PAIN [None]
  - PAIN [None]
  - PAIN IN EXTREMITY [None]
